FAERS Safety Report 8680047 (Version 2)
Quarter: 2013Q1

REPORT INFORMATION
  Report Type: Spontaneous
  Country: US (occurrence: None)
  Receive Date: 20120706
  Receipt Date: 20130219
  Transmission Date: 20140127
  Serious: Yes (Hospitalization)
  Sender: FDA-Public Use
  Company Number: DSU-2012-05088

PATIENT
  Age: 59 Year
  Sex: Female

DRUGS (4)
  1. OLMESARTAN MEDOXOMIL [Suspect]
     Dosage: PER ORAL
     Route: 048
     Dates: start: 2006, end: 20090515
  2. VALTREX (VALACICLOVIR HYDROCHLORIDE) (VALACICLOVIR HYDROCHLORIDE) [Concomitant]
  3. PAXIL (PAROXETINE HYDROCHLORIDE) (PAROXETINE HYDROCHLORIDE) [Concomitant]
  4. SPIRONOLACTONE (SPIRONOLACTONE) (SPIRONOLACTONE) [Concomitant]

REACTIONS (5)
  - WEIGHT DECREASED [None]
  - GASTRITIS [None]
  - DIARRHOEA [None]
  - MALABSORPTION [None]
  - COLITIS MICROSCOPIC [None]
